FAERS Safety Report 6653818-9 (Version None)
Quarter: 2010Q1

REPORT INFORMATION
  Report Type: 
  Country: None (occurrence: None)
  Receive Date: 20100326
  Receipt Date: 20100316
  Transmission Date: 20100710
  Serious: Yes (Hospitalization, Other)
  Sender: FDA-Public Use
  Company Number: B0629711A

PATIENT
  Sex: Male
  Weight: 65 kg

DRUGS (2)
  1. ARIXTRA [Suspect]
     Indication: THROMBOSIS PROPHYLAXIS
     Dosage: 1.5MG PER DAY
     Route: 058
     Dates: start: 20100120, end: 20100124
  2. LORCAM [Concomitant]
     Indication: ANALGESIC THERAPY
     Dosage: 4MG PER DAY
     Route: 048
     Dates: start: 20100120, end: 20100120

REACTIONS (3)
  - DECREASED APPETITE [None]
  - DUODENAL ULCER HAEMORRHAGE [None]
  - VOMITING [None]
